FAERS Safety Report 12288781 (Version 2)
Quarter: 2016Q2

REPORT INFORMATION
  Report Type: Report from Study
  Country: US (occurrence: US)
  Receive Date: 20160421
  Receipt Date: 20160503
  Transmission Date: 20160815
  Serious: Yes (Hospitalization, Other)
  Sender: FDA-Public Use
  Company Number: US-GILEAD-2016-0209257

PATIENT
  Age: 75 Year
  Sex: Female

DRUGS (5)
  1. VENTAVIS [Concomitant]
     Active Substance: ILOPROST
  2. INSULIN [Concomitant]
     Active Substance: INSULIN NOS
  3. AMBRISENTAN [Suspect]
     Active Substance: AMBRISENTAN
     Indication: PRODUCT USED FOR UNKNOWN INDICATION
     Dosage: 10 MG, QD
     Route: 065
     Dates: start: 20110518
  4. REVATIO [Concomitant]
     Active Substance: SILDENAFIL CITRATE
  5. SILDENAFIL. [Concomitant]
     Active Substance: SILDENAFIL

REACTIONS (3)
  - Syncope [Unknown]
  - Contusion [Unknown]
  - Loss of consciousness [Unknown]

NARRATIVE: CASE EVENT DATE: 20160405
